FAERS Safety Report 23940486 (Version 1)
Quarter: 2024Q2

REPORT INFORMATION
  Report Type: Spontaneous
  Country: NL (occurrence: NL)
  Receive Date: 20240605
  Receipt Date: 20240605
  Transmission Date: 20240716
  Serious: Yes (Hospitalization)
  Sender: FDA-Public Use
  Company Number: None

PATIENT
  Age: 72 Year
  Sex: Male
  Weight: 90 kg

DRUGS (2)
  1. AMOXICILLIN [Suspect]
     Active Substance: AMOXICILLIN
     Indication: Helicobacter infection
     Dosage: 1 PIECE TWICE A DAY, BRAND NAME NOT SPECIFIED
     Route: 065
     Dates: start: 20240503, end: 20240510
  2. CLARITHROMYCIN [Suspect]
     Active Substance: CLARITHROMYCIN
     Indication: Helicobacter infection
     Dosage: 1 PIECE TWICE A DAY, BRAND NAME NOT SPECIFIED
     Route: 065
     Dates: start: 20240503, end: 20240510

REACTIONS (1)
  - Rhabdomyolysis [Recovering/Resolving]
